FAERS Safety Report 8134038 (Version 2)
Quarter: 2013Q1

REPORT INFORMATION
  Report Type: Spontaneous
  Country: GB (occurrence: GB)
  Receive Date: 20110913
  Receipt Date: 20130305
  Transmission Date: 20140127
  Serious: Yes (Hospitalization, Other)
  Sender: FDA-Public Use
  Company Number: GB-BAXTER-2011BH022625

PATIENT
  Age: 1 Year
  Sex: Male
  Weight: 12 kg

DRUGS (9)
  1. KIOVIG [Suspect]
     Indication: HYPOGAMMAGLOBULINAEMIA
     Route: 042
     Dates: start: 20110627, end: 20110627
  2. ONDANSETRON [Concomitant]
     Indication: CHEMOTHERAPY
     Route: 042
     Dates: start: 20110520
  3. TEICOPLANIN [Concomitant]
     Indication: SEPSIS
     Route: 042
     Dates: start: 20110611, end: 20110629
  4. GENTAMICIN [Concomitant]
     Indication: SEPSIS
     Route: 042
     Dates: start: 20110618, end: 20110630
  5. CASPOFUNGIN [Concomitant]
     Indication: SEPSIS
     Route: 042
     Dates: start: 20110624, end: 20110707
  6. GRANULOCYTE COLONY STIMULATING FACTOR [Concomitant]
     Indication: PRODUCT USED FOR UNKNOWN INDICATION
     Route: 065
  7. CIPROFLOXACIN [Concomitant]
     Indication: PRODUCT USED FOR UNKNOWN INDICATION
     Route: 065
  8. SEPTRIN [Concomitant]
     Indication: PRODUCT USED FOR UNKNOWN INDICATION
     Route: 065
  9. METOCLOPRAMIDE [Concomitant]
     Indication: PRODUCT USED FOR UNKNOWN INDICATION
     Route: 065

REACTIONS (6)
  - Poor peripheral circulation [Recovered/Resolved]
  - Pyrexia [Recovered/Resolved]
  - Chills [Recovered/Resolved]
  - Tachycardia [Recovered/Resolved]
  - Chills [Recovered/Resolved]
  - Malaise [Recovered/Resolved]
